FAERS Safety Report 7740650-8 (Version None)
Quarter: 2011Q3

REPORT INFORMATION
  Report Type: 
  Country: None (occurrence: None)
  Receive Date: 20110909
  Receipt Date: 20110831
  Transmission Date: 20111222
  Serious: No
  Sender: FDA-Public Use
  Company Number: JP-MERCK-1105USA03969

PATIENT
  Age: 42 Year
  Sex: Male
  Weight: 83 kg

DRUGS (3)
  1. MYONAL [Suspect]
     Indication: MUSCULOSKELETAL STIFFNESS
     Dosage: DAILY DOSE UNKNOWN
     Route: 048
     Dates: start: 20110422, end: 20110423
  2. ZETIA [Suspect]
     Indication: HYPERCHOLESTEROLAEMIA
     Route: 048
     Dates: start: 20110425, end: 20110502
  3. AMLODIPINE [Suspect]
     Indication: HYPERTENSION
     Dosage: DOSAGE IS UNCERTAIN DURING A DAY
     Route: 048
     Dates: start: 20110416

REACTIONS (3)
  - SKIN EXFOLIATION [None]
  - SENSORY DISTURBANCE [None]
  - HYPERKERATOSIS [None]
